FAERS Safety Report 9172199 (Version 6)
Quarter: 2015Q2

REPORT INFORMATION
  Report Type: Spontaneous
  Country: JP (occurrence: JP)
  Receive Date: 20130319
  Receipt Date: 20150601
  Transmission Date: 20150821
  Serious: No
  Sender: FDA-Public Use
  Company Number: JP-LUNDBECK-DKLU1089716

PATIENT
  Age: 1 Month
  Sex: Male

DRUGS (1)
  1. ONFI [Suspect]
     Active Substance: CLOBAZAM
     Indication: MATERNAL EXPOSURE TIMING UNSPECIFIED
     Route: 063
     Dates: end: 20130311

REACTIONS (4)
  - Decreased activity [Unknown]
  - Liver disorder [Recovering/Resolving]
  - Weight gain poor [Recovering/Resolving]
  - Exposure during breast feeding [Recovered/Resolved]

NARRATIVE: CASE EVENT DATE: 201303
